FAERS Safety Report 20659790 (Version 2)
Quarter: 2022Q2

REPORT INFORMATION
  Report Type: Spontaneous
  Country: US (occurrence: US)
  Receive Date: 20220331
  Receipt Date: 20220517
  Transmission Date: 20220721
  Serious: No
  Sender: FDA-Public Use
  Company Number: US-JNJFOC-20220362114

PATIENT
  Age: 54 Year
  Sex: Female

DRUGS (5)
  1. OPSUMIT [Suspect]
     Active Substance: MACITENTAN
     Indication: Product used for unknown indication
     Route: 048
     Dates: start: 20220301
  2. AZELASTINE [Suspect]
     Active Substance: AZELASTINE
     Indication: Nasal congestion
     Route: 065
     Dates: start: 20220321
  3. SILDENAFIL [Concomitant]
     Active Substance: SILDENAFIL
     Indication: Pulmonary hypertension
     Dates: start: 20200101
  4. UPTRAVI [Concomitant]
     Active Substance: SELEXIPAG
     Indication: Pulmonary hypertension
     Dates: start: 20211105
  5. AMBRISENTAN [Concomitant]
     Active Substance: AMBRISENTAN
     Indication: Pulmonary hypertension
     Dates: start: 20210410, end: 20220317

REACTIONS (1)
  - Somnolence [Unknown]
